FAERS Safety Report 4972283-0 (Version None)
Quarter: 2006Q1

REPORT INFORMATION
  Report Type: 
  Country: None (occurrence: None)
  Receive Date: 20060213
  Receipt Date: 20051228
  Transmission Date: 20060701
  Serious: No
  Sender: FDA-Public Use
  Company Number: 012055

PATIENT
  Age: 77 Year
  Sex: Female

DRUGS (18)
  1. PRIALT [Suspect]
     Indication: PAIN
     Dosage: SEE IMAGE
     Route: 037
     Dates: start: 20051101, end: 20051115
  2. PRIALT [Suspect]
     Indication: PAIN
     Dosage: SEE IMAGE
     Route: 037
     Dates: start: 20051115, end: 20051129
  3. PRIALT [Suspect]
     Indication: PAIN
     Dosage: SEE IMAGE
     Route: 037
     Dates: start: 20051129, end: 20051213
  4. PRIALT [Suspect]
     Indication: PAIN
     Dosage: SEE IMAGE
     Route: 037
     Dates: start: 20051213, end: 20051221
  5. ATENOLOL [Concomitant]
  6. PLAVIX [Concomitant]
  7. MVI (VITAMINS NOS) [Concomitant]
  8. CALCIUM (CALCIUM) [Concomitant]
  9. DETROL /01350201/(TOLTERODINE) [Concomitant]
  10. DOXEPIN (OXYCODONE HYDROCHLORIDE) [Concomitant]
  11. OXYCODONE (OXYCODONE) [Concomitant]
  12. MIACALCIN [Concomitant]
  13. LASIX /00032601/ (FUROSEMIDE) [Concomitant]
  14. SALINE /00075401/ (SODIUM CHLORIDE) [Concomitant]
  15. .. [Concomitant]
  16. ,, [Concomitant]
  17. .. [Concomitant]
  18. .. [Concomitant]

REACTIONS (8)
  - BALANCE DISORDER [None]
  - DIZZINESS [None]
  - DYSPNOEA [None]
  - FATIGUE [None]
  - NAUSEA [None]
  - OEDEMA PERIPHERAL [None]
  - PAIN [None]
  - SEDATION [None]
